FAERS Safety Report 9757208 (Version 2)
Quarter: 2014Q1

REPORT INFORMATION
  Report Type: Spontaneous
  Country: GB (occurrence: GB)
  Receive Date: 20131213
  Receipt Date: 20140320
  Transmission Date: 20141002
  Serious: Yes (Other)
  Sender: FDA-Public Use
  Company Number: GB-AMGEN-GBRSP2013086943

PATIENT
  Age: 67 Year
  Sex: Female
  Weight: 57.15 kg

DRUGS (3)
  1. PROLIA [Suspect]
     Indication: OSTEOPOROSIS
     Dosage: 60 MG, UNK
     Route: 058
     Dates: start: 20130802
  2. ADCAL D3 [Concomitant]
     Dosage: 1 DF, BID
     Route: 048
  3. SOLPADOL [Concomitant]
     Dosage: UNK UNK, AS NECESSARY
     Route: 065

REACTIONS (5)
  - Gingival abscess [Recovered/Resolved]
  - Pain in jaw [Not Recovered/Not Resolved]
  - Cataract [Unknown]
  - Acne [Unknown]
  - Urinary tract infection [Recovered/Resolved]
